FAERS Safety Report 18369950 (Version 1)
Quarter: 2020Q4

REPORT INFORMATION
  Report Type: Spontaneous
  Country: SA (occurrence: SA)
  Receive Date: 20201012
  Receipt Date: 20201012
  Transmission Date: 20210114
  Serious: Yes (Other)
  Sender: FDA-Public Use
  Company Number: SA-LUPIN PHARMACEUTICALS INC.-2020-07031

PATIENT
  Age: 29 Year
  Sex: Male

DRUGS (3)
  1. FML [Concomitant]
     Active Substance: FLUOROMETHOLONE
     Indication: EPISCLERITIS
     Dosage: UNK, QID (FOUR TIMES A DAY FOR ONE WEEK)
     Route: 047
  2. AZITHROMYCIN ANHYDROUS. [Suspect]
     Active Substance: AZITHROMYCIN ANHYDROUS
     Indication: COVID-19
     Dosage: 500 MILLIGRAM, QD
     Route: 048
  3. PARACETAMOL [Concomitant]
     Active Substance: ACETAMINOPHEN
     Indication: SUPPORTIVE CARE
     Dosage: 1 GRAM, TID
     Route: 048

REACTIONS (1)
  - Off label use [Unknown]
